FAERS Safety Report 8312762-1 (Version None)
Quarter: 2012Q2

REPORT INFORMATION
  Report Type: 
  Country: None (occurrence: None)
  Receive Date: 20120426
  Receipt Date: 20120413
  Transmission Date: 20120825
  Serious: Yes (Other)
  Sender: FDA-Public Use
  Company Number: DE-BAYER-2012-035864

PATIENT
  Sex: Female

DRUGS (2)
  1. MIRENA [Suspect]
     Indication: CONTRACEPTION
     Dosage: UNK
     Dates: start: 20050701, end: 20101002
  2. LEVOTHYROXINE SODIUM [Concomitant]
     Indication: HYPERTHYROIDISM

REACTIONS (55)
  - ABDOMINAL PAIN LOWER [None]
  - FATIGUE [None]
  - EYE DISORDER [None]
  - EYE PAIN [None]
  - BREAST SWELLING [None]
  - MUSCULOSKELETAL STIFFNESS [None]
  - MUSCLE SPASMS [None]
  - OEDEMA PERIPHERAL [None]
  - TOOTH LOSS [None]
  - HEARING IMPAIRED [None]
  - DYSPEPSIA [None]
  - BREAST CYST [None]
  - VISION BLURRED [None]
  - ARTHRALGIA [None]
  - HYPERTHYROIDISM [None]
  - DANDRUFF [None]
  - ANXIETY [None]
  - AMNESIA [None]
  - PERSONALITY CHANGE [None]
  - VERTIGO [None]
  - HYPERHIDROSIS [None]
  - GALLBLADDER DISORDER [None]
  - FOOD CRAVING [None]
  - BREAST DISCHARGE [None]
  - PANIC ATTACK [None]
  - PREMATURE MENOPAUSE [None]
  - GENITAL SWELLING [None]
  - FOOD INTOLERANCE [None]
  - ECZEMA [None]
  - CHRONIC SINUSITIS [None]
  - PERIODONTITIS [None]
  - DISTURBANCE IN ATTENTION [None]
  - VISUAL IMPAIRMENT [None]
  - VAGINAL HAEMORRHAGE [None]
  - SKIN IRRITATION [None]
  - DYSPNOEA [None]
  - AGGRESSION [None]
  - LOSS OF LIBIDO [None]
  - CONSTIPATION [None]
  - CHILLS [None]
  - DEVICE DISLOCATION [None]
  - WEIGHT INCREASED [None]
  - ALOPECIA [None]
  - COITAL BLEEDING [None]
  - DIZZINESS [None]
  - PHOTOSENSITIVITY REACTION [None]
  - NAUSEA [None]
  - ACNE [None]
  - THIRST [None]
  - DEPRESSED MOOD [None]
  - PALPITATIONS [None]
  - MIGRAINE [None]
  - ERYTHEMA [None]
  - ABDOMINAL DISTENSION [None]
  - DIARRHOEA [None]
